FAERS Safety Report 4441614-2 (Version None)
Quarter: 2004Q3

REPORT INFORMATION
  Report Type: 
  Country: None (occurrence: None)
  Receive Date: 20040907
  Receipt Date: 20020304
  Transmission Date: 20050211
  Serious: Yes (Death)
  Sender: FDA-Public Use
  Company Number: US-ROCHE-308562

PATIENT
  Age: 30 Year
  Sex: Male
  Weight: 72.6 kg

DRUGS (2)
  1. ACCUTANE [Suspect]
     Dosage: SECOND COURSE OF ISOTRETINOIN TREATMENT. DAILY DOSE REPORTED AS 2 40MG CAPSULES.
     Route: 048
  2. ACCUTANE [Suspect]
     Dosage: FIRST COURSE OF ISOTRETINOIN TREATMENT.
     Route: 048

REACTIONS (6)
  - COMPLETED SUICIDE [None]
  - DEPRESSION [None]
  - DRUG INEFFECTIVE [None]
  - FEELING ABNORMAL [None]
  - PSYCHOTIC DISORDER [None]
  - SUICIDAL IDEATION [None]
